FAERS Safety Report 10414143 (Version 2)
Quarter: 2014Q3

REPORT INFORMATION
  Report Type: Spontaneous
  Country: US (occurrence: US)
  Receive Date: 20140827
  Receipt Date: 20140827
  Transmission Date: 20150326
  Serious: No
  Sender: FDA-Public Use
  Company Number: US-ASTRAZENECA-2013SE67569

PATIENT
  Age: 18773 Day
  Sex: Female

DRUGS (1)
  1. SYMBICORT [Suspect]
     Active Substance: BUDESONIDE\FORMOTEROL FUMARATE DIHYDRATE
     Dosage: 160/4.5 MCG, TWO PUFFS, BID
     Route: 055
     Dates: start: 2010

REACTIONS (2)
  - Drug dose omission [Unknown]
  - Visual impairment [Unknown]

NARRATIVE: CASE EVENT DATE: 20130904
